FAERS Safety Report 4309007-6 (Version None)
Quarter: 2004Q1

REPORT INFORMATION
  Report Type: 
  Country: None (occurrence: None)
  Receive Date: 20040301
  Receipt Date: 20040213
  Transmission Date: 20041129
  Serious: Yes (Life-Threatening)
  Sender: FDA-Public Use
  Company Number: 2003-06423

PATIENT
  Age: 57 Year
  Sex: Female

DRUGS (6)
  1. VIREAD [Suspect]
     Indication: HIV INFECTION
     Dosage: 300 MG QD PO
     Route: 048
     Dates: start: 20030929, end: 20031103
  2. VIDEX [Suspect]
     Indication: HIV INFECTION
     Dosage: 40 MG QD PO
     Route: 048
     Dates: start: 20030929, end: 20031103
  3. VIRAMUNE [Suspect]
     Indication: HIV INFECTION
     Dates: start: 20030929, end: 20031103
  4. AMOXICILLIN AND CLAVULANATE POTASSIUM [Suspect]
     Indication: NASOPHARYNGITIS
     Dosage: 3 GM QD PO
     Route: 048
     Dates: start: 20031024, end: 20031103
  5. GLUCOPHAGE [Concomitant]
  6. DEROXAT [Concomitant]

REACTIONS (4)
  - LUNG DISORDER [None]
  - STAPHYLOCOCCAL SEPSIS [None]
  - STEVENS-JOHNSON SYNDROME [None]
  - TOXIC EPIDERMAL NECROLYSIS [None]
